FAERS Safety Report 7086242-8 (Version None)
Quarter: 2010Q4

REPORT INFORMATION
  Report Type: 
  Country: None (occurrence: None)
  Receive Date: 20101105
  Receipt Date: 20101101
  Transmission Date: 20110411
  Serious: Yes (Other)
  Sender: FDA-Public Use
  Company Number: US-AMGEN-USASP2010002497

PATIENT

DRUGS (2)
  1. ENBREL [Suspect]
     Indication: RHEUMATOID ARTHRITIS
     Dates: start: 20080101
  2. METHOTREXATE (TREXALL) [Concomitant]
     Dates: start: 20080101

REACTIONS (9)
  - ARTHRALGIA [None]
  - CHILLS [None]
  - GINGIVAL OEDEMA [None]
  - INJECTION SITE PAIN [None]
  - JOINT SWELLING [None]
  - MOBILITY DECREASED [None]
  - NASOPHARYNGITIS [None]
  - NAUSEA [None]
  - STOMATITIS [None]
